FAERS Safety Report 9292015 (Version 1)
Quarter: 2013Q2

REPORT INFORMATION
  Report Type: Spontaneous
  Country: US (occurrence: US)
  Receive Date: 20130516
  Receipt Date: 20130516
  Transmission Date: 20140414
  Serious: No
  Sender: FDA-Public Use
  Company Number: US-PFIZER INC-2013150488

PATIENT
  Sex: Male
  Weight: 31.75 kg

DRUGS (1)
  1. QUILLIVANT XR [Suspect]
     Indication: ATTENTION DEFICIT/HYPERACTIVITY DISORDER
     Dosage: 50 MG, 1X/DAY IN THE MORNING
     Dates: start: 2013

REACTIONS (3)
  - Headache [Unknown]
  - Irritability [Unknown]
  - Abnormal behaviour [Unknown]
